FAERS Safety Report 16241218 (Version 2)
Quarter: 2019Q2

REPORT INFORMATION
  Report Type: Spontaneous
  Country: DE (occurrence: DE)
  Receive Date: 20190425
  Receipt Date: 20190425
  Transmission Date: 20190711
  Serious: Yes (Life-Threatening, Hospitalization, Other)
  Sender: FDA-Public Use
  Company Number: PHHY2019DE094285

PATIENT
  Sex: Female
  Weight: 49 kg

DRUGS (7)
  1. RITUXIMAB. [Suspect]
     Active Substance: RITUXIMAB
     Indication: DIFFUSE LARGE B-CELL LYMPHOMA
     Dosage: 1400 MG, Q3W
     Route: 058
     Dates: start: 20151118
  2. RITUXIMAB. [Suspect]
     Active Substance: RITUXIMAB
     Indication: DIFFUSE LARGE B-CELL LYMPHOMA
     Dosage: 374 MG/M2, UNK
     Route: 042
  3. VINCRISTINE [Suspect]
     Active Substance: VINCRISTINE
     Indication: DIFFUSE LARGE B-CELL LYMPHOMA
     Dosage: 1 OT, Q3W
     Route: 042
     Dates: start: 20151028, end: 20160225
  4. PREDNISOLONE. [Suspect]
     Active Substance: PREDNISOLONE
     Indication: DIFFUSE LARGE B-CELL LYMPHOMA
     Dosage: 1 OT, Q3W
     Route: 042
     Dates: start: 20151028, end: 20160225
  5. CYCLOPHOSPHAMIDE. [Suspect]
     Active Substance: CYCLOPHOSPHAMIDE
     Indication: DIFFUSE LARGE B-CELL LYMPHOMA
     Dosage: 1 OT, Q3W
     Route: 042
     Dates: start: 20151028, end: 20160225
  6. DOXORUBICINE [Suspect]
     Active Substance: DOXORUBICIN
     Indication: DIFFUSE LARGE B-CELL LYMPHOMA
     Dosage: 1 OT, Q3W
     Route: 042
     Dates: start: 20151028, end: 20160225
  7. METHOTREXATE. [Concomitant]
     Active Substance: METHOTREXATE
     Indication: PROPHYLAXIS
     Dosage: UNK ON DAY 1 AND DAY 6
     Route: 037

REACTIONS (4)
  - Neutropenia [Recovered/Resolved with Sequelae]
  - Leukopenia [Recovering/Resolving]
  - General physical health deterioration [Recovered/Resolved with Sequelae]
  - Hypokalaemia [Unknown]

NARRATIVE: CASE EVENT DATE: 20151110
